FAERS Safety Report 12903569 (Version 1)
Quarter: 2016Q4

REPORT INFORMATION
  Report Type: Spontaneous
  Country: US (occurrence: US)
  Receive Date: 20161102
  Receipt Date: 20161102
  Transmission Date: 20170207
  Serious: No
  Sender: FDA-Public Use
  Company Number: US-AMNEAL PHARMACEUTICALS-2016AMN00647

PATIENT
  Age: 69 Year
  Sex: Male
  Weight: 94.33 kg

DRUGS (2)
  1. NIACIN. [Suspect]
     Active Substance: NIACIN
     Indication: CARDIAC DISORDER
     Dosage: 1000 MG, 2X/DAY
     Route: 048
     Dates: start: 20160815
  2. ^SEVERAL OTHER^ [Concomitant]
     Dosage: UNK

REACTIONS (2)
  - Medication residue present [Unknown]
  - Drug ineffective [Unknown]

NARRATIVE: CASE EVENT DATE: 201609
